FAERS Safety Report 26040881 (Version 1)
Quarter: 2025Q4

REPORT INFORMATION
  Report Type: Spontaneous
  Country: US (occurrence: US)
  Receive Date: 20251113
  Receipt Date: 20251113
  Transmission Date: 20260118
  Serious: Yes (Death, Life-Threatening, Other)
  Sender: AMGEN
  Company Number: US-AMGEN-USASP2025222969

PATIENT

DRUGS (3)
  1. TARLATAMAB [Suspect]
     Active Substance: TARLATAMAB
     Indication: Medullary thyroid cancer
     Dosage: 1 MILLIGRAM (C1D1)
     Route: 065
  2. TARLATAMAB [Suspect]
     Active Substance: TARLATAMAB
     Indication: Off label use
     Dosage: 10 MILLIGRAM (C1D8)
     Route: 065
  3. TARLATAMAB [Suspect]
     Active Substance: TARLATAMAB
     Dosage: 10 MILLIGRAM, Q2WK (C1D15)
     Route: 065

REACTIONS (9)
  - Large intestine perforation [Fatal]
  - Immune effector cell-associated neurotoxicity syndrome [Unknown]
  - Cytokine release syndrome [Unknown]
  - Hypophosphataemia [Unknown]
  - Leukopenia [Unknown]
  - Neutropenia [Unknown]
  - Toxicity to various agents [Unknown]
  - Drug effective for unapproved indication [Unknown]
  - Off label use [Unknown]
